FAERS Safety Report 24654097 (Version 2)
Quarter: 2024Q4

REPORT INFORMATION
  Report Type: Spontaneous
  Country: JP (occurrence: JP)
  Receive Date: 20241122
  Receipt Date: 20241216
  Transmission Date: 20250115
  Serious: Yes (Life-Threatening, Hospitalization)
  Sender: UCB
  Company Number: JP-UCBSA-2024059447

PATIENT
  Age: 33 Year
  Sex: Male
  Weight: 30 kg

DRUGS (10)
  1. LEVETIRACETAM [Interacting]
     Active Substance: LEVETIRACETAM
     Indication: Status epilepticus
     Dosage: 900 MILLIGRAM, 2X/DAY (BID)
     Route: 048
  2. LEVETIRACETAM [Interacting]
     Active Substance: LEVETIRACETAM
     Indication: Off label use
  3. ROCURONIUM [Interacting]
     Active Substance: ROCURONIUM BROMIDE
     Indication: Induction of anaesthesia
     Dosage: 20 MILLIGRAM, 0.66 MG/KG BOLUSES
  4. DIAZEPAM [Concomitant]
     Active Substance: DIAZEPAM
     Indication: Status epilepticus
     Dosage: 10 MILLIGRAM
  5. SEVOFLURANE [Concomitant]
     Active Substance: SEVOFLURANE
     Indication: Induction of anaesthesia
     Dosage: 3 PERCENT
  6. FENTANYL [Concomitant]
     Active Substance: FENTANYL
     Indication: Induction of anaesthesia
     Dosage: 50 MICROGRAM, BOLUSES
  7. OXYGEN [Concomitant]
     Active Substance: OXYGEN
     Indication: Maintenance of anaesthesia
     Dosage: 0.5 L/MIN
  8. DESFLURANE [Concomitant]
     Active Substance: DESFLURANE
     Indication: Maintenance of anaesthesia
     Dosage: 4.5 PERCENT
  9. REMIFENTANIL [Concomitant]
     Active Substance: REMIFENTANIL
     Indication: Maintenance of anaesthesia
     Dosage: 0.2 UG/KG/MIN
  10. SUGAMMADEX [Concomitant]
     Active Substance: SUGAMMADEX
     Indication: Maintenance of anaesthesia
     Dosage: 200 MILLIGRAM

REACTIONS (6)
  - Drug resistance [Recovered/Resolved]
  - Paralysis [Recovered/Resolved]
  - Drug interaction [Recovered/Resolved]
  - Neuromuscular block prolonged [Recovered/Resolved]
  - Drug ineffective for unapproved indication [Unknown]
  - Off label use [Unknown]
